FAERS Safety Report 22256443 (Version 2)
Quarter: 2023Q2

REPORT INFORMATION
  Report Type: Report from Study
  Country: US (occurrence: US)
  Receive Date: 20230426
  Receipt Date: 20230508
  Transmission Date: 20230722
  Serious: Yes (Other)
  Sender: FDA-Public Use
  Company Number: US-JNJFOC-20230441450

PATIENT
  Age: 66 Year
  Sex: Male
  Weight: 89.4 kg

DRUGS (11)
  1. DARATUMUMAB [Suspect]
     Active Substance: DARATUMUMAB
     Indication: Plasma cell myeloma
     Dosage: WEEKLY CYCLES 1-2, DAY 1+15 CYCLES 3-6 AND ON DAY 1 CYCLE 7+
     Route: 058
     Dates: start: 20210128, end: 20220131
  2. ACYCLOVIR [Concomitant]
     Active Substance: ACYCLOVIR
     Indication: Prophylaxis
     Route: 048
     Dates: start: 201301
  3. APIXABAN [Concomitant]
     Active Substance: APIXABAN
     Indication: Embolism
     Route: 048
     Dates: start: 20201218
  4. B-COMPLEX [VITAMIN B COMPLEX] [Concomitant]
     Indication: Supplementation therapy
     Route: 048
     Dates: start: 201304
  5. LIDOCAINE [Concomitant]
     Active Substance: LIDOCAINE
     Indication: Back pain
     Route: 061
     Dates: start: 20190327
  6. MAGNESIUM OXIDE [Concomitant]
     Active Substance: MAGNESIUM OXIDE
     Indication: Supplementation therapy
     Route: 048
     Dates: start: 2013
  7. ONDANSETRON [Concomitant]
     Active Substance: ONDANSETRON
     Indication: Antiemetic supportive care
     Route: 048
     Dates: start: 2013
  8. PROMETHAZINE [Concomitant]
     Active Substance: PROMETHAZINE HYDROCHLORIDE
     Indication: Antiemetic supportive care
     Route: 048
     Dates: start: 2013
  9. CHOLECALCIFEROL [Concomitant]
     Active Substance: CHOLECALCIFEROL
     Indication: Supplementation therapy
     Route: 048
     Dates: start: 202005
  10. ZOMETA [Concomitant]
     Active Substance: ZOLEDRONIC ACID
     Indication: Osteoporosis prophylaxis
     Route: 042
     Dates: start: 201405
  11. PEDIALYTE [CALCIUM CHLORIDE;GLUCOSE;MAGNESIUM CHLORIDE;POTASSIUM CHLOR [Concomitant]
     Indication: Myalgia
     Route: 048
     Dates: start: 20210527

REACTIONS (2)
  - Squamous cell carcinoma [Recovered/Resolved]
  - Basal cell carcinoma [Recovered/Resolved]

NARRATIVE: CASE EVENT DATE: 20230131
